FAERS Safety Report 17619971 (Version 2)
Quarter: 2020Q2

REPORT INFORMATION
  Report Type: Report from Study
  Country: None (occurrence: US)
  Receive Date: 20200403
  Receipt Date: 20200508
  Transmission Date: 20200713
  Serious: Yes (Other)
  Sender: FDA-Public Use
  Company Number: US-ABBVIE-20K-163-3347493-00

PATIENT
  Sex: Male

DRUGS (1)
  1. HUMIRA [Suspect]
     Active Substance: ADALIMUMAB
     Indication: CROHN^S DISEASE
     Route: 058

REACTIONS (5)
  - Cyst [Recovered/Resolved]
  - Umbilical haemorrhage [Not Recovered/Not Resolved]
  - Umbilical hernia [Unknown]
  - Abdominal discomfort [Not Recovered/Not Resolved]
  - Umbilical discharge [Not Recovered/Not Resolved]

NARRATIVE: CASE EVENT DATE: 2019
